FAERS Safety Report 5417736-6 (Version None)
Quarter: 2007Q3

REPORT INFORMATION
  Report Type: 
  Country: None (occurrence: None)
  Receive Date: 20070815
  Receipt Date: 20070815
  Transmission Date: 20080115
  Serious: Yes (Hospitalization)
  Sender: FDA-Public Use
  Company Number: None

PATIENT
  Sex: Female
  Weight: 53.5244 kg

DRUGS (2)
  1. AVELOX [Suspect]
     Indication: SINUS CONGESTION
     Dosage: PO
     Route: 048
     Dates: start: 20061128
  2. DEPO SHOT [Concomitant]

REACTIONS (4)
  - CEREBRAL VASOCONSTRICTION [None]
  - DRUG HYPERSENSITIVITY [None]
  - LIP SWELLING [None]
  - SIMILAR REACTION ON PREVIOUS EXPOSURE TO DRUG [None]
